FAERS Safety Report 8282328-0 (Version None)
Quarter: 2012Q1

REPORT INFORMATION
  Report Type: 
  Country: None (occurrence: None)
  Receive Date: 20120328
  Receipt Date: 20120312
  Transmission Date: 20120608
  Serious: Yes (Hospitalization, Other)
  Sender: FDA-Public Use
  Company Number: 2012031723

PATIENT
  Sex: Male

DRUGS (2)
  1. KOGENATE FS [Suspect]
  2. HUMATE-P [Suspect]

REACTIONS (2)
  - LOSS OF CONSCIOUSNESS [None]
  - INFUSION RELATED REACTION [None]
